FAERS Safety Report 4928689-9 (Version None)
Quarter: 2006Q1

REPORT INFORMATION
  Report Type: 
  Country: None (occurrence: None)
  Receive Date: 20060301
  Receipt Date: 20060110
  Transmission Date: 20060701
  Serious: Yes (Death)
  Sender: FDA-Public Use
  Company Number: HQWYE292011JAN06

PATIENT
  Sex: Male

DRUGS (23)
  1. ENBREL [Suspect]
     Indication: RHEUMATOID ARTHRITIS
     Route: 058
     Dates: start: 20050520, end: 20060106
  2. RITUXAN [Suspect]
     Dosage: DOSE AND FREQUENCY UNKNOWN
     Route: 042
     Dates: start: 20051228, end: 20051228
  3. RITUXAN [Suspect]
     Route: 042
     Dates: start: 20060104, end: 20060104
  4. BETAMETHASONE [Concomitant]
     Indication: DRUG USE FOR UNKNOWN INDICATION
     Dates: end: 20060109
  5. RHEUMATREX [Concomitant]
     Dosage: DOSE AND FREQUENCY UNKNOWN
     Dates: start: 20050518, end: 20060109
  6. RHEUMATREX [Concomitant]
     Dosage: DOSE AND FREQUENCY UNKNOWN
     Route: 048
     Dates: end: 20060109
  7. AZULFIDINE [Concomitant]
     Dosage: DOSE AND FREQUENCY UNKNOWN
     Dates: start: 20050722, end: 20051018
  8. TACROLIMUS [Concomitant]
     Dosage: DOSE AND FREQUENCY UNKNOWN
     Dates: start: 20050828, end: 20051011
  9. PREDNISOLONE [Concomitant]
     Dosage: DOSE AND FREQUENCY UNKNOWN
  10. VOLTAREN [Concomitant]
     Dosage: DOSE AND FREQUENCY UNKNOWN
     Dates: start: 20050720, end: 20060109
  11. DEXAMETHASONE [Concomitant]
     Dates: start: 20051031, end: 20060109
  12. FOLIAMIN [Concomitant]
     Dates: start: 20050520, end: 20060109
  13. OMEPRAZOLE [Concomitant]
     Dates: start: 20050706, end: 20060109
  14. GASTROM [Concomitant]
     Dates: start: 20050420, end: 20060109
  15. ETIZOLAM [Concomitant]
     Dates: start: 20050420, end: 20060108
  16. URSODEOXYCHOLIC ACID [Concomitant]
     Dates: start: 20050518, end: 20060109
  17. BASEN [Concomitant]
     Dates: start: 20050727, end: 20060109
  18. FOSAMAX [Concomitant]
     Dates: start: 20050914, end: 20060109
  19. SULFAMETHOXAZOLE + TRIMETHOPRIM [Concomitant]
     Dates: start: 20051003, end: 20060109
  20. AMLODIPINE BESYLATE [Concomitant]
     Dates: start: 20060108, end: 20060109
  21. CEFOTIAM HYDROCHLORIDE [Concomitant]
     Dates: start: 20050914, end: 20050915
  22. MINOCYCLINE HCL [Concomitant]
     Dates: start: 20050727, end: 20050830
  23. CEFOPERAZONE SODIUM [Concomitant]

REACTIONS (6)
  - CARDIAC TAMPONADE [None]
  - CARDIO-RESPIRATORY ARREST [None]
  - DEAFNESS [None]
  - DRUG INEFFECTIVE [None]
  - HERPES ZOSTER [None]
  - PROCEDURAL COMPLICATION [None]
